FAERS Safety Report 24979854 (Version 1)
Quarter: 2025Q1

REPORT INFORMATION
  Report Type: Spontaneous
  Country: JP (occurrence: JP)
  Receive Date: 20250218
  Receipt Date: 20250218
  Transmission Date: 20250408
  Serious: Yes (Hospitalization)
  Sender: MANKIND PHARMA
  Company Number: JP-MankindUS-000327

PATIENT
  Age: 79 Year
  Sex: Male
  Weight: 44.8 kg

DRUGS (1)
  1. HALOPERIDOL DECANOATE [Suspect]
     Active Substance: HALOPERIDOL DECANOATE
     Indication: Antipsychotic therapy
     Route: 030

REACTIONS (1)
  - Catatonia [Recovered/Resolved]
